FAERS Safety Report 7917446-7 (Version None)
Quarter: 2011Q4

REPORT INFORMATION
  Report Type: 
  Country: None (occurrence: None)
  Receive Date: 20111116
  Receipt Date: 20111103
  Transmission Date: 20120403
  Serious: Yes (Hospitalization)
  Sender: FDA-Public Use
  Company Number: KR-ROCHE-1011821

PATIENT
  Sex: Female

DRUGS (3)
  1. FLOMOX [Concomitant]
     Dates: start: 20110920, end: 20110922
  2. VIGAMOX [Concomitant]
     Dates: start: 20110920, end: 20110922
  3. RANIBIZUMAB [Suspect]
     Indication: AGE-RELATED MACULAR DEGENERATION
     Route: 050
     Dates: start: 20110920

REACTIONS (1)
  - RETINAL HAEMORRHAGE [None]
